FAERS Safety Report 5272996-X (Version None)
Quarter: 2007Q1

REPORT INFORMATION
  Report Type: 
  Country: None (occurrence: None)
  Receive Date: 20070316
  Receipt Date: 20070306
  Transmission Date: 20070707
  Serious: No
  Sender: FDA-Public Use
  Company Number: 2007-155468-NL

PATIENT
  Age: 36 Year
  Sex: Female

DRUGS (2)
  1. MIRTAZAPINE [Suspect]
     Indication: DEPRESSION
     Dosage: 3.75 MG
     Route: 048
     Dates: start: 20050101, end: 20070101
  2. MIRTAZAPINE [Suspect]
     Indication: GENERALISED ANXIETY DISORDER
     Dosage: 3.75 MG
     Route: 048
     Dates: start: 20050101, end: 20070101

REACTIONS (2)
  - ABORTION SPONTANEOUS [None]
  - DRUG EXPOSURE DURING PREGNANCY [None]
